FAERS Safety Report 12006225 (Version 1)
Quarter: 2016Q1

REPORT INFORMATION
  Report Type: Report from Study
  Country: US (occurrence: US)
  Receive Date: 20160204
  Receipt Date: 20160204
  Transmission Date: 20160526
  Serious: No
  Sender: FDA-Public Use
  Company Number: US-ABBVIE-15K-163-1427665-00

PATIENT
  Sex: Female

DRUGS (1)
  1. HUMIRA [Suspect]
     Active Substance: ADALIMUMAB
     Indication: PRODUCT USED FOR UNKNOWN INDICATION
     Route: 065

REACTIONS (22)
  - Abdominal distension [Unknown]
  - Anxiety [Unknown]
  - Rash [Unknown]
  - Constipation [Unknown]
  - Crying [Unknown]
  - Breast pain [Unknown]
  - Eye contusion [Unknown]
  - Hypoaesthesia [Unknown]
  - Bone pain [Unknown]
  - Pollakiuria [Unknown]
  - Dizziness [Unknown]
  - Urinary incontinence [Unknown]
  - Breast tenderness [Unknown]
  - Influenza like illness [Unknown]
  - Arthralgia [Unknown]
  - Peripheral coldness [Unknown]
  - Chest pain [Unknown]
  - Nausea [Unknown]
  - Diarrhoea [Unknown]
  - Vision blurred [Unknown]
  - Depression [Unknown]
  - Fibromyalgia [Unknown]
